FAERS Safety Report 8265513-3 (Version None)
Quarter: 2012Q2

REPORT INFORMATION
  Report Type: 
  Country: None (occurrence: None)
  Receive Date: 20120406
  Receipt Date: 20120404
  Transmission Date: 20120825
  Serious: Yes (Other)
  Sender: FDA-Public Use
  Company Number: MX-PFIZER INC-2012085483

PATIENT
  Sex: Female

DRUGS (1)
  1. REVATHIO [Suspect]
     Route: 048

REACTIONS (2)
  - MACULOPATHY [None]
  - DYSPEPSIA [None]
